FAERS Safety Report 21651792 (Version 2)
Quarter: 2022Q4

REPORT INFORMATION
  Report Type: Report from Study
  Country: EG (occurrence: EG)
  Receive Date: 20221128
  Receipt Date: 20221206
  Transmission Date: 20230112
  Serious: Yes (Other)
  Sender: FDA-Public Use
  Company Number: EG-002147023-NVSC2022EG275416

PATIENT
  Age: 42 Year
  Sex: Female

DRUGS (10)
  1. MYFORTIC [Suspect]
     Active Substance: MYCOPHENOLATE SODIUM
     Indication: Renal transplant
     Dosage: 2 DOSAGE FORM, BID (TWO TABLETS IN THE MORNING AND TWO AT NIGHT)
     Route: 048
     Dates: end: 20220227
  2. MYFORTIC [Suspect]
     Active Substance: MYCOPHENOLATE SODIUM
     Dosage: 1 DOSAGE FORM, BID (ONE TABLET IN THE MORNING AND ONE AT NIGHT)
     Route: 065
     Dates: start: 20220227, end: 20220527
  3. MYFORTIC [Suspect]
     Active Substance: MYCOPHENOLATE SODIUM
     Dosage: UNK UNK, BID (TWO TABLETS IN THE MORNING AND ONE AT NIGHT(OFF-LABEL DOSE)
     Route: 065
     Dates: start: 20220527
  4. TACROLIMUS [Suspect]
     Active Substance: TACROLIMUS
     Indication: Renal transplant
     Dosage: 3 DOSAGE FORM, (ONE DOSAGE FORM IN THE MORNING AND TWO DOSAGE FORM IN THE NIGHT)
     Route: 048
     Dates: start: 20211225
  5. NOVORAPID [Concomitant]
     Active Substance: INSULIN ASPART
     Indication: Diabetes mellitus
     Dosage: 100 (AFTER SURGERY), QD
     Route: 065
     Dates: start: 2021
  6. MIXTARD HUMAN 70/30 [Concomitant]
     Active Substance: INSULIN HUMAN
     Indication: Diabetes mellitus
     Dosage: QD
     Route: 065
     Dates: start: 2014
  7. ACTRAPID [Concomitant]
     Active Substance: INSULIN HUMAN
     Indication: Diabetes mellitus
     Dosage: 100, QD
     Route: 065
     Dates: start: 2014
  8. LANTUS [Concomitant]
     Active Substance: INSULIN GLARGINE
     Indication: Diabetes mellitus
     Dosage: 100 (AFTER SURGERY), QD
     Route: 065
     Dates: start: 2021
  9. CARVEDILOL [Concomitant]
     Active Substance: CARVEDILOL
     Indication: Hypertension
     Dosage: 1 DOSAGE FORM, BID
     Route: 048
     Dates: start: 2019
  10. PLENDIL [Concomitant]
     Active Substance: FELODIPINE
     Indication: Hypertension
     Dosage: 1 DOSAGE FORM, TID
     Route: 048
     Dates: start: 2019

REACTIONS (6)
  - Drug level abnormal [Not Recovered/Not Resolved]
  - Proteinuria [Not Recovered/Not Resolved]
  - Blood potassium abnormal [Not Recovered/Not Resolved]
  - Oedema peripheral [Not Recovered/Not Resolved]
  - Off label use [Recovered/Resolved]
  - Off label use [Not Recovered/Not Resolved]

NARRATIVE: CASE EVENT DATE: 20220201
